FAERS Safety Report 13645920 (Version 1)
Quarter: 2017Q2

REPORT INFORMATION
  Report Type: Report from Study
  Country: None (occurrence: BR)
  Receive Date: 20170613
  Receipt Date: 20170613
  Transmission Date: 20170830
  Serious: Yes (Other)
  Sender: FDA-Public Use
  Company Number: BR-ABBVIE-17K-020-1970417-00

PATIENT
  Age: 62 Year
  Sex: Male
  Weight: 74 kg

DRUGS (5)
  1. TYLEX [Concomitant]
     Active Substance: ACETAMINOPHEN\CODEINE PHOSPHATE
     Indication: SPINAL PAIN
     Dosage: AS NEEDED.
     Route: 048
  2. HUMIRA [Suspect]
     Active Substance: ADALIMUMAB
     Indication: PSORIASIS
     Route: 058
     Dates: start: 20150615, end: 20170405
  3. AAS [Concomitant]
     Active Substance: ASPIRIN
     Indication: PAIN
     Dosage: AS NEEDED.
     Route: 048
  4. TORSILAX [Concomitant]
     Active Substance: ACETAMINOPHEN\CAFFEINE\CARISOPRODOL\DICLOFENAC
     Indication: PAIN
     Dosage: AS NEEDED.
     Route: 048
  5. LIPLESS [Concomitant]
     Active Substance: CIPROFIBRATE
     Indication: PROPHYLAXIS
     Route: 048
     Dates: start: 2015

REACTIONS (1)
  - Mass [Not Recovered/Not Resolved]

NARRATIVE: CASE EVENT DATE: 201701
